FAERS Safety Report 4332091-0 (Version None)
Quarter: 2004Q2

REPORT INFORMATION
  Report Type: 
  Country: None (occurrence: None)
  Receive Date: 20040405
  Receipt Date: 19920401
  Transmission Date: 20050107
  Serious: Yes (Death, Life-Threatening, Hospitalization)
  Sender: FDA-Public Use
  Company Number: FI-ROCHE-920100178001

PATIENT
  Age: 19 Year
  Sex: Female

DRUGS (6)
  1. DIAZEPAM [Suspect]
     Route: 048
     Dates: start: 19920124, end: 19920124
  2. AURORIX [Interacting]
     Route: 048
     Dates: start: 19920124, end: 19920124
  3. ANAFRANIL RETARD [Interacting]
     Route: 048
     Dates: start: 19920124, end: 19920124
  4. LIBRIUM [Suspect]
     Route: 065
     Dates: start: 19920124, end: 19920124
  5. CANNABIS [Concomitant]
     Route: 065
     Dates: start: 19920124, end: 19920124
  6. ALCOHOL [Concomitant]
     Route: 048
     Dates: start: 19920124, end: 19920124

REACTIONS (8)
  - CONVULSION [None]
  - DRUG INTERACTION [None]
  - EUPHORIC MOOD [None]
  - HYPERPYREXIA [None]
  - LOSS OF CONSCIOUSNESS [None]
  - OVERDOSE [None]
  - SEROTONIN SYNDROME [None]
  - STATUS EPILEPTICUS [None]
